FAERS Safety Report 15430770 (Version 1)
Quarter: 2018Q3

REPORT INFORMATION
  Report Type: Spontaneous
  Country: DE (occurrence: DE)
  Receive Date: 20180926
  Receipt Date: 20180926
  Transmission Date: 20181010
  Serious: Yes (Hospitalization, Other)
  Sender: FDA-Public Use
  Company Number: DE-JNJFOC-20180921517

PATIENT

DRUGS (1)
  1. HUMAN CLOTTABLE PROTEIN/HUMAN THROMBIN [Suspect]
     Active Substance: FIBRINOGEN HUMAN\THROMBIN HUMAN
     Indication: CEREBROSPINAL FLUID LEAKAGE
     Route: 061

REACTIONS (5)
  - Product use in unapproved indication [Unknown]
  - Cerebrospinal fluid leakage [Unknown]
  - Procedural complication [Unknown]
  - Drug ineffective for unapproved indication [Unknown]
  - Off label use [Unknown]
